FAERS Safety Report 7628033-2 (Version None)
Quarter: 2011Q3

REPORT INFORMATION
  Report Type: 
  Country: None (occurrence: None)
  Receive Date: 20110722
  Receipt Date: 20110714
  Transmission Date: 20111222
  Serious: No
  Sender: FDA-Public Use
  Company Number: US-BIOGENIDEC-2011BI024889

PATIENT
  Age: 58 Year
  Sex: Female

DRUGS (2)
  1. BENADRYL [Concomitant]
     Indication: PREMEDICATION
     Route: 042
     Dates: start: 20110701
  2. TYSABRI [Suspect]
     Indication: MULTIPLE SCLEROSIS
     Route: 042
     Dates: start: 20071211

REACTIONS (3)
  - RASH PRURITIC [None]
  - DERMATITIS ALLERGIC [None]
  - PRURITUS GENERALISED [None]
